FAERS Safety Report 7371738-1 (Version None)
Quarter: 2011Q1

REPORT INFORMATION
  Report Type: 
  Country: None (occurrence: None)
  Receive Date: 20110324
  Receipt Date: 20110317
  Transmission Date: 20110831
  Serious: Yes (Hospitalization)
  Sender: FDA-Public Use
  Company Number: JP-ROCHE-749060

PATIENT
  Sex: Male

DRUGS (23)
  1. ACTEMRA [Suspect]
     Route: 041
     Dates: start: 20090925, end: 20090925
  2. PREDNISOLONE [Suspect]
     Route: 048
     Dates: start: 20091218
  3. CALFINA [Concomitant]
     Route: 048
  4. PROCYLIN [Concomitant]
     Route: 048
  5. ACTEMRA [Suspect]
     Route: 041
     Dates: start: 20091217, end: 20091217
  6. ACTEMRA [Suspect]
     Route: 041
     Dates: start: 20100315, end: 20100315
  7. CYTOTEC [Concomitant]
     Route: 048
  8. ACTEMRA [Suspect]
     Route: 041
     Dates: start: 20100607, end: 20100607
  9. PREDONINE [Concomitant]
     Route: 048
  10. ACTEMRA [Suspect]
     Route: 041
     Dates: start: 20090826, end: 20090826
  11. ACTEMRA [Suspect]
     Route: 041
     Dates: start: 20100114, end: 20100114
  12. ACTEMRA [Suspect]
     Route: 041
     Dates: start: 20100215, end: 20100215
  13. PREDNISOLONE [Suspect]
     Indication: RHEUMATOID ARTHRITIS
     Route: 048
     Dates: end: 20091217
  14. SALAZOSULFAPYRIDINE [Concomitant]
     Dosage: REPORTED AS: ASASURFAN  DOSAGE FORM: ENTERIC COATING DRUG
     Route: 048
     Dates: end: 20090926
  15. ACTEMRA [Suspect]
     Route: 041
     Dates: start: 20091119, end: 20091119
  16. ACTEMRA [Suspect]
     Route: 041
     Dates: start: 20100412, end: 20100412
  17. VOLTAREN [Concomitant]
     Route: 048
  18. ASPARA-CA [Concomitant]
     Route: 048
  19. ACTEMRA [Suspect]
     Indication: RHEUMATOID ARTHRITIS
     Dosage: DOSAGE IS UNCERTAIN.
     Route: 041
     Dates: start: 20090729, end: 20090729
  20. ACTEMRA [Suspect]
     Route: 041
     Dates: start: 20091022, end: 20091022
  21. ACTEMRA [Suspect]
     Route: 041
     Dates: start: 20100510, end: 20100510
  22. ACTEMRA [Suspect]
     Route: 041
     Dates: start: 20100705, end: 20100705
  23. BUCILLAMINE [Concomitant]
     Route: 048

REACTIONS (2)
  - PLEURISY [None]
  - MYCOBACTERIUM AVIUM COMPLEX INFECTION [None]
